FAERS Safety Report 18740253 (Version 1)
Quarter: 2021Q1

REPORT INFORMATION
  Report Type: Spontaneous
  Country: US (occurrence: US)
  Receive Date: 20210114
  Receipt Date: 20210114
  Transmission Date: 20210419
  Serious: Yes (Hospitalization, Other)
  Sender: FDA-Public Use
  Company Number: None

PATIENT
  Age: 12 Year
  Sex: Male
  Weight: 72 kg

DRUGS (1)
  1. IBUPROFEN TABLETS, 200MG [Suspect]
     Active Substance: IBUPROFEN
     Indication: HEADACHE
     Dosage: ?          QUANTITY:1 TABLET(S);?
     Route: 048
     Dates: start: 20210111, end: 20210112

REACTIONS (6)
  - Dyspnoea [None]
  - Shock [None]
  - Feeling abnormal [None]
  - Hypertension [None]
  - Pulse abnormal [None]
  - Product quality issue [None]

NARRATIVE: CASE EVENT DATE: 20210112
